FAERS Safety Report 9318260 (Version 1)
Quarter: 2013Q2

REPORT INFORMATION
  Report Type: Spontaneous
  Country: RS (occurrence: None)
  Receive Date: 20130524
  Receipt Date: 20130524
  Transmission Date: 20140414
  Serious: Yes (Hospitalization)
  Sender: FDA-Public Use
  Company Number: AG-2012-0806

PATIENT
  Age: 68 Year
  Sex: Male

DRUGS (2)
  1. CHLORAMBUCIL (CHLORAMBUCIL) (UNKNOWN) [Suspect]
     Indication: CHRONIC LYMPHOCYTIC LEUKAEMIA
     Dates: start: 20120319, end: 20120419
  2. NEUPOGEN (FILGRASTIM) (UNKNOWN) [Concomitant]

REACTIONS (9)
  - Neutropenia [None]
  - Haemoglobin decreased [None]
  - Blood immunoglobulin G decreased [None]
  - Blood immunoglobulin M decreased [None]
  - Thrombocytopenia [None]
  - Dyspnoea [None]
  - Tachycardia [None]
  - Hyperhidrosis [None]
  - Blood magnesium decreased [None]
